FAERS Safety Report 14232088 (Version 5)
Quarter: 2018Q4

REPORT INFORMATION
  Report Type: Spontaneous
  Country: FI (occurrence: FI)
  Receive Date: 20171128
  Receipt Date: 20181231
  Transmission Date: 20190204
  Serious: Yes (Death, Other)
  Sender: FDA-Public Use
  Company Number: FI-PFIZER INC-2017509834

PATIENT
  Age: 20 Year
  Sex: Female

DRUGS (10)
  1. SODIUM VALPROATE [Suspect]
     Active Substance: VALPROATE SODIUM
     Indication: SEIZURE
     Dosage: 900 MG, DAILY
  2. GABAPENTIN. [Suspect]
     Active Substance: GABAPENTIN
     Indication: SEIZURE
     Dosage: UNK
  3. TOPIRAMATE. [Suspect]
     Active Substance: TOPIRAMATE
     Indication: SEIZURE
     Dosage: UNK
  4. THIOPENTONE /00053401/ [Suspect]
     Active Substance: THIOPENTAL
     Indication: SEIZURE
     Dosage: UNK
  5. OXCARBAZEPINE. [Suspect]
     Active Substance: OXCARBAZEPINE
     Dosage: 1200 MG, DAILY
  6. FOSPHENYTOIN SODIUM. [Suspect]
     Active Substance: FOSPHENYTOIN SODIUM
     Indication: SEIZURE
     Dosage: UNK
  7. PREGABALIN. [Suspect]
     Active Substance: PREGABALIN
     Dosage: UNK
  8. MIDAZOLAM [Suspect]
     Active Substance: MIDAZOLAM HYDROCHLORIDE
     Indication: SEIZURE
     Dosage: UNK
  9. CLONAZEPAM. [Suspect]
     Active Substance: CLONAZEPAM
     Indication: SEIZURE
     Dosage: UNK
  10. PARACETAMOL [Suspect]
     Active Substance: ACETAMINOPHEN
     Dosage: 8 G, DAILY

REACTIONS (11)
  - Bilirubin conjugated increased [Unknown]
  - Blood alkaline phosphatase increased [Unknown]
  - Blood bilirubin increased [Unknown]
  - Coma hepatic [Unknown]
  - International normalised ratio increased [Unknown]
  - Drug resistance [Unknown]
  - Blood lactic acid increased [Unknown]
  - Hepatic failure [Fatal]
  - Alanine aminotransferase increased [Unknown]
  - Ammonia increased [Unknown]
  - Somnolence [Unknown]
